FAERS Safety Report 6755440-2 (Version None)
Quarter: 2010Q2

REPORT INFORMATION
  Report Type: 
  Country: None (occurrence: None)
  Receive Date: 20100604
  Receipt Date: 20100521
  Transmission Date: 20101027
  Serious: Yes (Other)
  Sender: FDA-Public Use
  Company Number: GR-RANBAXY-2010RR-34151

PATIENT
  Age: 29 Year
  Sex: Female

DRUGS (1)
  1. ISOTRETINOIN [Suspect]

REACTIONS (1)
  - SCHIZOPHRENIA, PARANOID TYPE [None]
